FAERS Safety Report 11108594 (Version 1)
Quarter: 2015Q2

REPORT INFORMATION
  Report Type: Spontaneous
  Country: DE (occurrence: DE)
  Receive Date: 20150513
  Receipt Date: 20150513
  Transmission Date: 20150821
  Serious: Yes (Life-Threatening, Hospitalization)
  Sender: FDA-Public Use
  Company Number: DE-AMGEN-DEUSP2015044509

PATIENT
  Age: 64 Year
  Sex: Female

DRUGS (6)
  1. FRAGMIN [Concomitant]
     Active Substance: DALTEPARIN SODIUM
     Dosage: 3500 IU, QD
     Route: 058
  2. MAGNESIUM [Concomitant]
     Active Substance: MAGNESIUM
     Dosage: 300 MG, EVERY 2 DAYS
     Route: 048
  3. CANDESARTAN [Concomitant]
     Active Substance: CANDESARTAN
     Dosage: 8 MG, QD
     Route: 048
  4. EUBIOL                             /00126107/ [Concomitant]
     Dosage: 1 DF, QD
     Route: 048
  5. XGEVA [Suspect]
     Active Substance: DENOSUMAB
     Indication: OSTEOPOROSIS
     Dosage: 60 MG, UNK
     Route: 058
     Dates: start: 201411
  6. BELOC-ZOK COMP [Concomitant]
     Active Substance: HYDROCHLOROTHIAZIDE\METOPROLOL SUCCINATE
     Dosage: 23.75 MG, QD
     Route: 048

REACTIONS (2)
  - Hypocalcaemia [Recovered/Resolved]
  - Electrocardiogram QT prolonged [Recovered/Resolved]

NARRATIVE: CASE EVENT DATE: 20141208
